FAERS Safety Report 4268687-4 (Version None)
Quarter: 2004Q1

REPORT INFORMATION
  Report Type: 
  Country: None (occurrence: None)
  Receive Date: 20040109
  Receipt Date: 20040105
  Transmission Date: 20041129
  Serious: Yes (Other)
  Sender: FDA-Public Use
  Company Number: 2004192939GB

PATIENT
  Age: 73 Year
  Sex: Male
  Weight: 66 kg

DRUGS (5)
  1. CELEBREX [Suspect]
     Indication: CANCER PAIN
     Dosage: 100 MG, BID, ORAL
     Route: 048
     Dates: start: 20031128, end: 20031208
  2. TAMSULOSIN (TAMSULOSIN) [Concomitant]
  3. CASODEX [Concomitant]
  4. ZOLADEX [Concomitant]
  5. APROVEL (IRBESARTAN) [Concomitant]

REACTIONS (3)
  - ANXIETY [None]
  - INSOMNIA [None]
  - RESTLESSNESS [None]
